FAERS Safety Report 5010357-9 (Version None)
Quarter: 2006Q2

REPORT INFORMATION
  Report Type: 
  Country: None (occurrence: None)
  Receive Date: 20060523
  Receipt Date: 20051021
  Transmission Date: 20061013
  Serious: Yes (Hospitalization)
  Sender: FDA-Public Use
  Company Number: 2005147334

PATIENT
  Age: 47 Year
  Sex: Male
  Weight: 98.8842 kg

DRUGS (3)
  1. ROGAINE [Suspect]
     Indication: ALOPECIA
     Dosage: TWICE A DAY, TOPICAL
     Route: 061
     Dates: start: 20051014, end: 20051017
  2. PRINZIDE [Concomitant]
  3. ATORVASTATIN CALCIUM [Concomitant]

REACTIONS (1)
  - HYPOAESTHESIA [None]
